FAERS Safety Report 20501375 (Version 4)
Quarter: 2022Q2

REPORT INFORMATION
  Report Type: Report from Study
  Country: AU (occurrence: None)
  Receive Date: 20220222
  Receipt Date: 20220518
  Transmission Date: 20220720
  Serious: Yes (Hospitalization)
  Sender: FDA-Public Use
  Company Number: AU-ROCHE-3018701

PATIENT
  Age: 74 Year
  Sex: Female
  Weight: 62.5 kg

DRUGS (8)
  1. TIRAGOLUMAB [Suspect]
     Active Substance: TIRAGOLUMAB
     Indication: Metastatic neoplasm
     Dosage: DOSE LAST STUDY DRUG ADMIN PRIOR AE IS 840 MG. ON 13-JAN-2022 12:55 PM, SHE RECEIVED MOST RECENT DOS
     Route: 042
     Dates: start: 20211215
  2. ATEZOLIZUMAB [Suspect]
     Active Substance: ATEZOLIZUMAB
     Indication: Metastatic neoplasm
     Dosage: DOSE LAST STUDY DRUG ADMIN PRIOR AE IS 1680 MG. ON 13-JAN-2022 12:55 PM, SHE RECEIVED MOST RECENT DO
     Route: 041
     Dates: start: 20211215
  3. ERGOCALCIFEROL [Concomitant]
     Active Substance: ERGOCALCIFEROL
     Indication: Vitamin D deficiency
     Route: 048
  4. NILSTAT [Concomitant]
     Active Substance: NYSTATIN
     Indication: Oral candidiasis
     Route: 048
     Dates: start: 20220105, end: 20220111
  5. NILSTAT [Concomitant]
     Active Substance: NYSTATIN
     Route: 048
     Dates: start: 20220214, end: 20220220
  6. PANTOPRAZOLE [Concomitant]
     Active Substance: PANTOPRAZOLE
     Indication: Gastrointestinal disorder prophylaxis
     Route: 048
     Dates: start: 20220128
  7. SULFAMETHOXAZOLE\TRIMETHOPRIM [Concomitant]
     Active Substance: SULFAMETHOXAZOLE\TRIMETHOPRIM
     Indication: Pneumocystis jirovecii pneumonia
     Route: 048
     Dates: start: 20220215, end: 20220218
  8. SULFAMETHOXAZOLE\TRIMETHOPRIM [Concomitant]
     Active Substance: SULFAMETHOXAZOLE\TRIMETHOPRIM
     Dosage: 1 TABLET
     Route: 048
     Dates: start: 20220304, end: 20220318

REACTIONS (2)
  - Terminal ileitis [Recovered/Resolved]
  - Autoimmune arthritis [Recovered/Resolved]

NARRATIVE: CASE EVENT DATE: 20211224
